FAERS Safety Report 9006203 (Version 1)
Quarter: 2013Q1

REPORT INFORMATION
  Report Type: Spontaneous
  Country: US (occurrence: US)
  Receive Date: 20130110
  Receipt Date: 20130110
  Transmission Date: 20140127
  Serious: Yes (Other)
  Sender: FDA-Public Use
  Company Number: US-009507513-0907USA03754

PATIENT
  Age: 11 Year
  Sex: Male
  Weight: 40.37 kg

DRUGS (5)
  1. SINGULAIR [Suspect]
     Indication: ASTHMA
     Dosage: 5 MG, QD
     Route: 048
     Dates: start: 20080901, end: 20081102
  2. ALLEGRA [Concomitant]
  3. VITAMINS (UNSPECIFIED) [Concomitant]
  4. TUSSI-12 [Concomitant]
  5. XYZAL [Concomitant]

REACTIONS (9)
  - Anger [Recovered/Resolved]
  - Feeling abnormal [Recovered/Resolved]
  - Suicidal behaviour [Recovered/Resolved]
  - Suicidal ideation [Recovered/Resolved]
  - Aggression [Recovered/Resolved]
  - Depression [Recovered/Resolved]
  - Headache [Recovered/Resolved]
  - Irritability [Recovered/Resolved]
  - Myalgia [Recovered/Resolved]
